FAERS Safety Report 13124918 (Version 2)
Quarter: 2017Q2

REPORT INFORMATION
  Report Type: Report from Study
  Country: IT (occurrence: IT)
  Receive Date: 20170118
  Receipt Date: 20170404
  Transmission Date: 20170830
  Serious: Yes (Other)
  Sender: FDA-Public Use
  Company Number: IT-TEVA-729158ACC

PATIENT
  Age: 27 Year
  Sex: Male

DRUGS (1)
  1. COPAXONE [Suspect]
     Active Substance: GLATIRAMER ACETATE
     Indication: MULTIPLE SCLEROSIS
     Dosage: 2 DF TOTAL; UNKNOWN FORM STRENGTH
     Route: 058
     Dates: start: 20160901, end: 20160915

REACTIONS (4)
  - Dermatitis bullous [Recovered/Resolved]
  - Tachycardia [Recovered/Resolved]
  - Hyperpyrexia [Recovered/Resolved]
  - Pruritus [Recovered/Resolved]

NARRATIVE: CASE EVENT DATE: 20160915
